FAERS Safety Report 4778696-4 (Version None)
Quarter: 2005Q3

REPORT INFORMATION
  Report Type: 
  Country: None (occurrence: None)
  Receive Date: 20050922
  Receipt Date: 20050920
  Transmission Date: 20060218
  Serious: Yes (Other)
  Sender: FDA-Public Use
  Company Number: GBWYE989219SEP05

PATIENT

DRUGS (1)
  1. EFFEXOR [Suspect]

REACTIONS (1)
  - PETIT MAL EPILEPSY [None]
